FAERS Safety Report 24221813 (Version 4)
Quarter: 2025Q3

REPORT INFORMATION
  Report Type: Spontaneous
  Country: AU (occurrence: AU)
  Receive Date: 20240819
  Receipt Date: 20250815
  Transmission Date: 20251021
  Serious: Yes (Hospitalization, Congenital Anomaly, Other)
  Sender: TEVA
  Company Number: AU-TEVA-VS-3230151

PATIENT
  Sex: Male

DRUGS (2)
  1. ARMODAFINIL [Suspect]
     Active Substance: ARMODAFINIL
     Indication: Product used for unknown indication
     Dosage: NUVIGIL
     Route: 065
     Dates: start: 201904, end: 202002
  2. ESCITALOPRAM [Concomitant]
     Active Substance: ESCITALOPRAM OXALATE
     Indication: Product used for unknown indication
     Dates: start: 2017, end: 201909

REACTIONS (7)
  - Hypospadias [Recovering/Resolving]
  - Foetal exposure during pregnancy [Unknown]
  - Transposition of the great vessels [Recovering/Resolving]
  - Deafness congenital [Recovering/Resolving]
  - Bradycardia foetal [Unknown]
  - Congenital anomaly of inner ear [Unknown]
  - Pulmonary hypertension [Unknown]

NARRATIVE: CASE EVENT DATE: 20210621
